FAERS Safety Report 9494787 (Version 1)
Quarter: 2013Q3

REPORT INFORMATION
  Report Type: Spontaneous
  Country: US (occurrence: US)
  Receive Date: 20130903
  Receipt Date: 20130903
  Transmission Date: 20140515
  Serious: No
  Sender: FDA-Public Use
  Company Number: US-PFIZER INC-2013248752

PATIENT
  Age: 90 Year
  Sex: Male

DRUGS (12)
  1. SUTENT [Suspect]
     Indication: RENAL CANCER
     Dosage: 12.5 MG, UNK
     Route: 048
     Dates: start: 20130812
  2. ASPIRIN [Concomitant]
     Dosage: UNK
  3. FINASTERIDE [Concomitant]
     Dosage: UNK
  4. FISH OIL [Concomitant]
     Dosage: UNK
  5. HYDRALAZINE HYDROCHLORIDE [Concomitant]
     Dosage: UNK
  6. LASIX [Concomitant]
     Dosage: UNK
  7. NITRO-DUR [Concomitant]
     Dosage: UNK
  8. NITROSTAT [Concomitant]
     Dosage: UNK
  9. OCUVITE [Concomitant]
     Dosage: UNK
  10. TAMSULOSIN HYDROCHLORIDE [Concomitant]
     Dosage: UNK
  11. TOPROL XL [Concomitant]
     Dosage: UNK
  12. ZOCOR [Concomitant]
     Dosage: UNK

REACTIONS (2)
  - Oedema peripheral [Unknown]
  - Rash [Unknown]
